FAERS Safety Report 5612199-X (Version None)
Quarter: 2008Q1

REPORT INFORMATION
  Report Type: 
  Country: None (occurrence: None)
  Receive Date: 20080204
  Receipt Date: 20080123
  Transmission Date: 20080703
  Serious: Yes (Hospitalization)
  Sender: FDA-Public Use
  Company Number: AU-NOVOPROD-271104

PATIENT

DRUGS (12)
  1. NOVOLOG MIX 70/30 [Suspect]
     Indication: DRUG USE FOR UNKNOWN INDICATION
     Dosage: 72 IU, QD
     Route: 058
     Dates: start: 20071101
  2. TRAMADOL HCL [Concomitant]
     Dosage: 150 MG, BID
  3. DOTHEP [Concomitant]
     Dosage: 25 MG, QD
  4. WARFARIN SODIUM [Concomitant]
     Dosage: VARIABLE
  5. COVERSYL                           /00790701/ [Concomitant]
     Dosage: 5 MG, UNK
     Route: 048
  6. ESTRADERM [Concomitant]
     Dosage: UNK, BIW
     Route: 061
  7. ACIMAX                             /00661201/ [Concomitant]
     Dosage: 20 MG, TID
  8. NORVASC                            /00972401/ [Concomitant]
     Dosage: 5 MG, QD
  9. PREDNISOLONE [Concomitant]
  10. PLAQUENIL                          /00072601/ [Concomitant]
  11. SPIRONOLACTONE [Concomitant]
  12. UREMIDE [Concomitant]

REACTIONS (4)
  - DIARRHOEA [None]
  - HYPERGLYCAEMIA [None]
  - INTERNATIONAL NORMALISED RATIO INCREASED [None]
  - URINARY TRACT INFECTION BACTERIAL [None]
